FAERS Safety Report 10169284 (Version 2)
Quarter: 2014Q2

REPORT INFORMATION
  Report Type: Spontaneous
  Country: US (occurrence: US)
  Receive Date: 20140513
  Receipt Date: 20140513
  Transmission Date: 20141212
  Serious: No
  Sender: FDA-Public Use
  Company Number: US-B.I. PHARMACEUTICALS,INC./RIDGEFIELD-2014-BI-09261BP

PATIENT
  Age: 77 Year
  Sex: Male
  Weight: 79 kg

DRUGS (1)
  1. PRADAXA [Suspect]
     Indication: PULMONARY EMBOLISM
     Dosage: 300 MG
     Route: 048
     Dates: start: 20140208, end: 20140210

REACTIONS (2)
  - Nausea [Recovered/Resolved]
  - Dyspepsia [Recovered/Resolved]
